FAERS Safety Report 23416699 (Version 1)
Quarter: 2024Q1

REPORT INFORMATION
  Report Type: Spontaneous
  Country: US (occurrence: None)
  Receive Date: 20240117
  Receipt Date: 20240117
  Transmission Date: 20240410
  Serious: Yes (Disabling)
  Sender: FDA-Public Use
  Company Number: None

PATIENT
  Age: 48 Year
  Sex: Female
  Weight: 75.6 kg

DRUGS (10)
  1. TYSABRI [Suspect]
     Active Substance: NATALIZUMAB
     Indication: Multiple sclerosis
     Dosage: OTHER QUANTITY : 1 INFUSED 1 HR.;?OTHER FREQUENCY : ONCE A MONTH;?
     Route: 042
     Dates: start: 20230807, end: 20231212
  2. ESTARYLLA [Concomitant]
     Active Substance: ETHINYL ESTRADIOL\NORGESTIMATE
  3. TRAMADOL [Concomitant]
     Active Substance: TRAMADOL\TRAMADOL HYDROCHLORIDE
  4. LUNESTA [Concomitant]
     Active Substance: ESZOPICLONE
  5. MELOXICAM [Concomitant]
     Active Substance: MELOXICAM
  6. NURTEC ODT [Concomitant]
     Active Substance: RIMEGEPANT SULFATE
  7. VITAMINS [Concomitant]
     Active Substance: VITAMINS
  8. VITAMIN D [Concomitant]
     Active Substance: VITAMIN D NOS
  9. PROBIOTICS NOS [Concomitant]
     Active Substance: PROBIOTICS NOS
  10. UNSPECIFIED INGREDIENT [Concomitant]
     Active Substance: UNSPECIFIED INGREDIENT

REACTIONS (12)
  - Infusion related reaction [None]
  - Headache [None]
  - Drug ineffective [None]
  - Neck pain [None]
  - Tenderness [None]
  - Fatigue [None]
  - Gait disturbance [None]
  - Muscular weakness [None]
  - Asthenia [None]
  - Hypersomnia [None]
  - Therapy cessation [None]
  - Toxicity to various agents [None]

NARRATIVE: CASE EVENT DATE: 20230907
